FAERS Safety Report 18673305 (Version 2)
Quarter: 2021Q1

REPORT INFORMATION
  Report Type: Spontaneous
  Country: US (occurrence: US)
  Receive Date: 20201229
  Receipt Date: 20210201
  Transmission Date: 20210419
  Serious: No
  Sender: FDA-Public Use
  Company Number: US-SA-2020SA364932

PATIENT
  Age: 63 Year
  Sex: Female

DRUGS (1)
  1. DUPIXENT [Suspect]
     Active Substance: DUPILUMAB
     Indication: DERMATITIS ATOPIC
     Dosage: 300 MG, QOW
     Route: 058
     Dates: start: 20200922

REACTIONS (5)
  - Dermatitis atopic [Recovering/Resolving]
  - Swelling face [Recovering/Resolving]
  - Therapeutic response decreased [Recovering/Resolving]
  - Erythema [Recovering/Resolving]
  - Infection [Unknown]

NARRATIVE: CASE EVENT DATE: 2020
